FAERS Safety Report 4317808-3 (Version None)
Quarter: 2004Q1

REPORT INFORMATION
  Report Type: 
  Country: None (occurrence: None)
  Receive Date: 20040316
  Receipt Date: 20040303
  Transmission Date: 20041129
  Serious: Yes (Other)
  Sender: FDA-Public Use
  Company Number: PHEH2004US02648

PATIENT
  Age: 69 Year
  Sex: Male
  Weight: 94 kg

DRUGS (3)
  1. ZOMETA [Suspect]
     Indication: METASTASES TO BONE
     Dosage: 4 MG, ONCE/SINGLE
     Route: 042
     Dates: start: 20040211
  2. ACIPHEX [Concomitant]
     Indication: GASTROOESOPHAGEAL REFLUX DISEASE
     Dosage: 20 MG, QD
  3. LORTAB [Concomitant]
     Indication: PAIN
     Dosage: 1-2 TABS, PRN
     Route: 048
     Dates: start: 20040101

REACTIONS (5)
  - EYE INFLAMMATION [None]
  - EYE PAIN [None]
  - LACRIMATION INCREASED [None]
  - UVEITIS [None]
  - VISION BLURRED [None]
